FAERS Safety Report 18575546 (Version 1)
Quarter: 2020Q4

REPORT INFORMATION
  Report Type: Report from Study
  Country: CA (occurrence: CA)
  Receive Date: 20201203
  Receipt Date: 20201203
  Transmission Date: 20210114
  Serious: Yes (Other)
  Sender: FDA-Public Use
  Company Number: CA-JNJFOC-20201100809

PATIENT
  Age: 65 Year
  Sex: Female
  Weight: 60.1 kg

DRUGS (2)
  1. STELARA [Suspect]
     Active Substance: USTEKINUMAB
     Route: 058
     Dates: start: 2020
  2. STELARA [Suspect]
     Active Substance: USTEKINUMAB
     Indication: CROHN^S DISEASE
     Route: 042
     Dates: start: 20201002

REACTIONS (6)
  - Gastrointestinal stenosis [Not Recovered/Not Resolved]
  - Pain in extremity [Unknown]
  - Eating disorder [Unknown]
  - Anaemia [Unknown]
  - Arthralgia [Not Recovered/Not Resolved]
  - Headache [Unknown]

NARRATIVE: CASE EVENT DATE: 2020
